FAERS Safety Report 10390991 (Version 4)
Quarter: 2016Q4

REPORT INFORMATION
  Report Type: Spontaneous
  Country: US (occurrence: US)
  Receive Date: 20140818
  Receipt Date: 20161012
  Transmission Date: 20170206
  Serious: Yes (Other)
  Sender: FDA-Public Use
  Company Number: US-PFIZER INC-2014226896

PATIENT
  Age: 62 Year
  Sex: Female
  Weight: 108.4 kg

DRUGS (6)
  1. LYRICA [Suspect]
     Active Substance: PREGABALIN
     Indication: SPINAL CORD INJURY
  2. CALCIUM [Concomitant]
     Active Substance: CALCIUM
     Dosage: 1200 MG, UNK
  3. TIZANIDINE. [Concomitant]
     Active Substance: TIZANIDINE
     Indication: MYALGIA
     Dosage: 16 MG, AS NEEDED  (4 MG TABLET 4XPRN)
  4. VITAMIN D3 [Concomitant]
     Active Substance: CHOLECALCIFEROL
     Dosage: 1000 IU, DAILY
  5. LYRICA [Suspect]
     Active Substance: PREGABALIN
     Indication: NEURALGIA
     Dosage: 150 MG, 2X/DAY
     Route: 048
     Dates: start: 2009, end: 2009
  6. LYRICA [Suspect]
     Active Substance: PREGABALIN
     Indication: FIBROMYALGIA
     Dosage: 200 MG, 3X/DAY
     Route: 048
     Dates: start: 2009

REACTIONS (3)
  - Injury [Unknown]
  - Anxiety [Unknown]
  - Hepatitis C [Unknown]
